FAERS Safety Report 5433401-3 (Version None)
Quarter: 2007Q3

REPORT INFORMATION
  Report Type: 
  Country: None (occurrence: None)
  Receive Date: 20070831
  Receipt Date: 20070621
  Transmission Date: 20080115
  Serious: No
  Sender: FDA-Public Use
  Company Number: A0658868A

PATIENT
  Age: 72 Year

DRUGS (1)
  1. ALLI [Suspect]
     Route: 048

REACTIONS (1)
  - DIARRHOEA [None]
